FAERS Safety Report 7246036 (Version 2)
Quarter: 2014Q3

REPORT INFORMATION
  Report Type: Spontaneous
  Country: US (occurrence: None)
  Receive Date: 20091230
  Receipt Date: 20140730
  Transmission Date: 20150326
  Serious: Yes (Hospitalization, Other)
  Sender: FDA-Public Use
  Company Number: 2009S1008998

PATIENT
  Age: 50 Year
  Sex: Female
  Weight: 155 kg

DRUGS (22)
  1. ALBUTEROL (SALBUTAMOL) [Concomitant]
     Active Substance: ALBUTEROL
  2. LISINOPRIL. [Concomitant]
     Active Substance: LISINOPRIL
  3. INSULIN [Concomitant]
     Active Substance: INSULIN NOS
  4. HYDROXYZINE [Concomitant]
     Active Substance: HYDROXYZINE\HYDROXYZINE HYDROCHLORIDE
  5. ATENOLOL. [Concomitant]
     Active Substance: ATENOLOL
  6. CYCLOBENZAPRINE [Concomitant]
     Active Substance: CYCLOBENZAPRINE
  7. AMARYL [Concomitant]
     Active Substance: GLIMEPIRIDE
  8. ASPIRIN (ACETYLSALICYLIC ACID) [Concomitant]
     Active Substance: ASPIRIN
  9. NAPROXEN. [Concomitant]
     Active Substance: NAPROXEN
  10. FLEET [Suspect]
     Active Substance: BISACODYL\GLYCERIN\MINERAL OIL\SODIUM PHOSPHATE, DIBASIC\SODIUM PHOSPHATE, MONOBASIC
     Indication: CONSTIPATION
     Route: 054
     Dates: start: 20070115, end: 20070116
  11. METOCLOPRAMIDE. [Concomitant]
     Active Substance: METOCLOPRAMIDE
  12. PHOSPHO-SODA [Suspect]
     Active Substance: SODIUM PHOSPHATE, DIBASIC\SODIUM PHOSPHATE, MONOBASIC
     Indication: GASTRIC BYPASS
     Dosage: 90 ML;TOTAL;PO
     Route: 048
     Dates: start: 20070103, end: 20070103
  13. MEPERIDINE (PETHIDINE) [Concomitant]
  14. FAMOTIDINE. [Concomitant]
     Active Substance: FAMOTIDINE
  15. POTASSIUM CHLORIDE. [Concomitant]
     Active Substance: POTASSIUM CHLORIDE
  16. PROMETHAZINE [Concomitant]
     Active Substance: PROMETHAZINE\PROMETHAZINE HYDROCHLORIDE
  17. NALOXONE [Concomitant]
     Active Substance: NALOXONE
  18. LIPITOR [Concomitant]
     Active Substance: ATORVASTATIN CALCIUM
  19. ACTOS [Concomitant]
     Active Substance: PIOGLITAZONE HYDROCHLORIDE
  20. DIPHENHYDRAMINE [Concomitant]
     Active Substance: DIPHENHYDRAMINE
  21. MORPHINE SULFATE. [Concomitant]
     Active Substance: MORPHINE SULFATE
  22. HYDROCHLOROTHIAZIDE. [Concomitant]
     Active Substance: HYDROCHLOROTHIAZIDE

REACTIONS (21)
  - Fatigue [None]
  - Alopecia [None]
  - Nephrosclerosis [None]
  - Arthralgia [None]
  - Obesity [None]
  - Blood parathyroid hormone increased [None]
  - Acute coronary syndrome [None]
  - Blood creatinine increased [None]
  - Balance disorder [None]
  - Dizziness [None]
  - Incisional hernia [None]
  - Renal tubular necrosis [None]
  - Abdominal adhesions [None]
  - Insomnia [None]
  - Hypoglycaemia [None]
  - Renal disorder [None]
  - Glomerular filtration rate decreased [None]
  - Vomiting [None]
  - Nephrogenic anaemia [None]
  - Abdominal pain upper [None]
  - Renal failure acute [None]

NARRATIVE: CASE EVENT DATE: 20070105
